FAERS Safety Report 4339002-2 (Version None)
Quarter: 2004Q1

REPORT INFORMATION
  Report Type: 
  Country: None (occurrence: None)
  Receive Date: 20040329
  Receipt Date: 20040204
  Transmission Date: 20041129
  Serious: No
  Sender: FDA-Public Use
  Company Number: USA040258524

PATIENT
  Age: 52 Year
  Sex: Male

DRUGS (2)
  1. STRATTERA [Suspect]
     Indication: ATTENTION DEFICIT/HYPERACTIVITY DISORDER
     Dosage: 40 MG/DAY
     Route: 048
     Dates: start: 20040119
  2. METHOTREXATE [Concomitant]

REACTIONS (2)
  - DRUG INTERACTION [None]
  - DRY MOUTH [None]
